FAERS Safety Report 8764364 (Version 1)
Quarter: 2012Q4

REPORT INFORMATION
  Report Type: 
  Country: BR (occurrence: BR)
  Receive Date: 20120831
  Receipt Date: 20120831
  Transmission Date: 20130627
  Serious: Yes (Other)
  Sender: FDA-Public Use
  Company Number: PHHY2012BR073690

PATIENT
  Age: 58 Year
  Sex: Female

DRUGS (8)
  1. FORASEQ [Suspect]
     Dosage: UNK UKN, Q12H
  2. ONBREZ [Suspect]
     Dosage: 150 ug, daily
  3. ONBREZ [Suspect]
     Dosage: 300 ug, daily
  4. INFLUENZA VACCINE [Concomitant]
     Dosage: UNK UKN, UNK
  5. OXYGEN THERAPY [Concomitant]
     Dosage: UNK UKN, UNK
  6. PNEUMOCOCCAL VACCINE [Concomitant]
     Dosage: UNK UKN, UNK
  7. TIOTROPIUM [Concomitant]
     Dosage: 2.5 ug, BID
  8. THEOPHYLLINE [Concomitant]
     Dosage: UNK UKN, UNK

REACTIONS (5)
  - Infection [Unknown]
  - Dyspnoea [Unknown]
  - Pulmonary function test decreased [Unknown]
  - Condition aggravated [Unknown]
  - Gastric disorder [Unknown]
